FAERS Safety Report 10906935 (Version 1)
Quarter: 2015Q1

REPORT INFORMATION
  Report Type: Spontaneous
  Country: US (occurrence: None)
  Receive Date: 20150309
  Receipt Date: 20150309
  Transmission Date: 20150721
  Serious: No
  Sender: FDA-Public Use
  Company Number: None

PATIENT
  Age: 58 Year
  Sex: Male
  Weight: 97.52 kg

DRUGS (8)
  1. LEXAPRO [Suspect]
     Active Substance: ESCITALOPRAM OXALATE
     Indication: STRESS
     Dosage: 1 PILL
     Route: 048
     Dates: start: 20150301, end: 20150302
  2. HYDROCODONE BITARTRATE AND ACETAMINOPHEN [Concomitant]
     Active Substance: ACETAMINOPHEN\HYDROCODONE BITARTRATE
  3. LEXAPRO [Suspect]
     Active Substance: ESCITALOPRAM OXALATE
     Indication: ANXIETY
     Dosage: 1 PILL
     Route: 048
     Dates: start: 20150301, end: 20150302
  4. DAILY MULTIPLE VITAMIN [Concomitant]
  5. VITAMIN D-3 [Concomitant]
  6. ATENOLOL. [Concomitant]
     Active Substance: ATENOLOL
  7. LOVASTATIN. [Concomitant]
     Active Substance: LOVASTATIN
  8. POLICOSANOL [Concomitant]

REACTIONS (7)
  - Urticaria [None]
  - Blister [None]
  - Swelling [None]
  - Erythema [None]
  - Rash [None]
  - Pruritus [None]
  - Skin exfoliation [None]

NARRATIVE: CASE EVENT DATE: 20150302
